FAERS Safety Report 7921132-7 (Version None)
Quarter: 2011Q4

REPORT INFORMATION
  Report Type: 
  Country: None (occurrence: None)
  Receive Date: 20111117
  Receipt Date: 20110224
  Transmission Date: 20120403
  Serious: Yes (Other)
  Sender: FDA-Public Use
  Company Number: PHHY2011IN15300

PATIENT
  Age: 7 Year
  Sex: Male

DRUGS (2)
  1. RISPERIDONE [Suspect]
     Dosage: 2 MG, UNK
  2. METHYLPHENIDATE [Interacting]
     Indication: ATTENTION DEFICIT/HYPERACTIVITY DISORDER
     Dosage: 10 MG, UNK

REACTIONS (8)
  - PROTRUSION TONGUE [None]
  - INSOMNIA [None]
  - DECREASED APPETITE [None]
  - AKATHISIA [None]
  - LIMB DISCOMFORT [None]
  - DYSKINESIA [None]
  - STRESS [None]
  - RESTLESSNESS [None]
